FAERS Safety Report 4726320-9 (Version None)
Quarter: 2005Q3

REPORT INFORMATION
  Report Type: 
  Country: None (occurrence: None)
  Receive Date: 20050727
  Receipt Date: 20040923
  Transmission Date: 20060218
  Serious: Yes (Hospitalization)
  Sender: FDA-Public Use
  Company Number: CZ-ROCHE-411177

PATIENT
  Age: 49 Year
  Sex: Male
  Weight: 90 kg

DRUGS (7)
  1. DACLIZUMAB [Suspect]
     Route: 042
     Dates: start: 20040915
  2. MYCOPHENOLATE MOFETIL [Suspect]
     Route: 048
     Dates: start: 20040915, end: 20040917
  3. SIROLIMUS [Suspect]
     Route: 048
     Dates: start: 20040915, end: 20040915
  4. METHYLPREDNISOLONE 16MG TAB [Suspect]
     Dosage: DOSE REPORTED AS 125 EVERY DAY.
     Route: 042
     Dates: start: 20040915
  5. FAMOTIDINE [Concomitant]
     Route: 042
     Dates: start: 20040915, end: 20040921
  6. METOPROLOL [Concomitant]
     Route: 048
     Dates: start: 20040916
  7. AMBROXOL [Concomitant]
     Route: 042
     Dates: start: 20040916, end: 20040921

REACTIONS (1)
  - PANCREATITIS ACUTE [None]
